FAERS Safety Report 12555890 (Version 1)
Quarter: 2016Q3

REPORT INFORMATION
  Report Type: Spontaneous
  Country: GB (occurrence: GB)
  Receive Date: 20160714
  Receipt Date: 20160714
  Transmission Date: 20161109
  Serious: Yes (Disabling)
  Sender: FDA-Public Use
  Company Number: GB-SUN PHARMACEUTICAL INDUSTRIES LTD-2016RR-120176

PATIENT
  Age: 1 Month
  Sex: Male

DRUGS (18)
  1. PEDIACEL [Suspect]
     Active Substance: DIPHTHERIA AND TETANUS TOXOIDS AND ACELLULAR PERTUSSIS ADSORBED, INACTIVATED POLIOVIRUS AND HAEMOPHILUS B CONJUGATE (TETANUS TOXOID CONJUGATE) VACCINE
     Dosage: 0.5 ML, UNK
     Route: 030
     Dates: start: 20081009, end: 20081009
  2. PRIORIX [Suspect]
     Active Substance: MEASLES-MUMPS-RUBELLA VIRUS VACCINE
     Indication: IMMUNISATION
     Dosage: UNK
     Route: 065
     Dates: start: 20090811, end: 20090811
  3. CODEINE [Suspect]
     Active Substance: CODEINE
     Indication: PRODUCT USED FOR UNKNOWN INDICATION
     Dosage: UNK
     Route: 063
  4. MENJUGATE [Suspect]
     Active Substance: MENINGOCOCCAL POLYSACCHARIDE VACCINE C
     Dosage: UNK
     Route: 030
     Dates: start: 20081106, end: 20081106
  5. ANAESTHETIC [Suspect]
     Active Substance: UNSPECIFIED INGREDIENT
     Indication: TONSILLECTOMY
     Dosage: UNK
     Route: 065
  6. REPEVAX [Suspect]
     Active Substance: DIPHTHERIA AND TETANUS TOXOIDS AND ACELLULAR PERTUSSIS ADSORBED AND INACTIVATED POLIOVIRUS VACCINE
     Indication: IMMUNISATION
     Dosage: UNK
     Route: 030
     Dates: start: 20111117, end: 20111117
  7. PEDIACEL [Suspect]
     Active Substance: DIPHTHERIA AND TETANUS TOXOIDS AND ACELLULAR PERTUSSIS ADSORBED, INACTIVATED POLIOVIRUS AND HAEMOPHILUS B CONJUGATE (TETANUS TOXOID CONJUGATE) VACCINE
     Indication: IMMUNISATION
     Dosage: 0.5 ML, UNK
     Route: 030
     Dates: start: 20080910, end: 20080910
  8. MENJUGATE [Suspect]
     Active Substance: MENINGOCOCCAL POLYSACCHARIDE VACCINE C
     Indication: IMMUNISATION
     Dosage: 0.5 ML, UNK
     Route: 030
     Dates: start: 20081009, end: 20081009
  9. MENINGOCOCCAL POLYSACCHARIDE VACCINE C NOS [Suspect]
     Active Substance: MENINGOCOCCAL POLYSACCHARIDE VACCINE C\NEISSERIA MENINGITIDIS GROUP C CAPSULAR POLYSACCHARIDE ANTIGEN
     Indication: IMMUNISATION
     Dosage: UNK
     Route: 065
     Dates: start: 20080729, end: 20080729
  10. ANALGESIC [Suspect]
     Active Substance: UNSPECIFIED INGREDIENT
     Indication: PRODUCT USED FOR UNKNOWN INDICATION
     Dosage: UNK
     Route: 063
  11. PREVNAR 13 [Suspect]
     Active Substance: PNEUMOCOCCAL 13-VALENT CONJUGATE VACCINE
     Indication: IMMUNISATION
     Route: 030
     Dates: start: 20080910, end: 20080910
  12. PREVNAR 13 [Suspect]
     Active Substance: PNEUMOCOCCAL 13-VALENT CONJUGATE VACCINE
     Dosage: UNK
     Route: 030
     Dates: start: 20090811, end: 20090811
  13. PREVNAR 13 [Suspect]
     Active Substance: PNEUMOCOCCAL 13-VALENT CONJUGATE VACCINE
     Dosage: UNK
     Route: 030
     Dates: start: 20080729, end: 20080729
  14. MENITORIX [Suspect]
     Active Substance: HAEMOPHILUS INFLUENZAE TYPE B\NEISSERIA MENINGITIDIS GROUP C CAPSULAR POLYSACCHARIDE ANTIGEN
     Indication: IMMUNISATION
     Dosage: 0.5 ML, UNK
     Route: 065
     Dates: start: 20090720, end: 20090720
  15. M-M-RVAXPRO [Suspect]
     Active Substance: MEASLES VIRUS STRAIN ENDERS^ ATTENUATED EDMONSTON LIVE ANTIGEN\MUMPS VIRUS STRAIN B LEVEL JERYL LYNN LIVE ANTIGEN\RUBELLA VIRUS STRAIN WISTAR RA 27/3 LIVE ANTIGEN
     Indication: IMMUNISATION
     Dosage: UNK
     Route: 065
     Dates: start: 20111117, end: 20111117
  16. PREVNAR 13 [Suspect]
     Active Substance: PNEUMOCOCCAL 13-VALENT CONJUGATE VACCINE
     Route: 030
     Dates: start: 20081106, end: 20081106
  17. PEDIACEL [Suspect]
     Active Substance: DIPHTHERIA AND TETANUS TOXOIDS AND ACELLULAR PERTUSSIS ADSORBED, INACTIVATED POLIOVIRUS AND HAEMOPHILUS B CONJUGATE (TETANUS TOXOID CONJUGATE) VACCINE
     Dosage: 0.5 ML, UNK
     Route: 030
     Dates: start: 20081106, end: 20081106
  18. DTPA IPV HIB VACCINE [Suspect]
     Active Substance: DIPHTHERIA AND TETANUS TOXOIDS AND ACELLULAR PERTUSSIS ADSORBED, INACTIVATED POLIOVIRUS AND HAEMOPHILUS B CONJUGATE (TETANUS TOXOID CONJUGATE) VACCINE
     Indication: IMMUNISATION
     Dosage: UNK
     Route: 065
     Dates: start: 20080729, end: 20080729

REACTIONS (29)
  - Abnormal behaviour [Unknown]
  - Inappropriate schedule of drug administration [Unknown]
  - Hypersensitivity [Unknown]
  - Screaming [Unknown]
  - Coordination abnormal [Unknown]
  - Psychomotor hyperactivity [Unknown]
  - Muscular weakness [Unknown]
  - Autism [Unknown]
  - Eye disorder [Unknown]
  - Infection [Not Recovered/Not Resolved]
  - Mydriasis [Unknown]
  - Cough [Unknown]
  - Aggression [Unknown]
  - Ear infection [Not Recovered/Not Resolved]
  - Tonsillitis [Recovered/Resolved]
  - Food intolerance [Unknown]
  - Crepitations [Unknown]
  - Somnolence [Unknown]
  - Feeling drunk [Unknown]
  - Hand-eye coordination impaired [Unknown]
  - Upper respiratory tract infection [Unknown]
  - Reaction to drug excipients [Unknown]
  - Pyrexia [Unknown]
  - Condition aggravated [Unknown]
  - Decreased appetite [Unknown]
  - Cow^s milk intolerance [Unknown]
  - Dyspraxia [Unknown]
  - Hypermobility syndrome [Unknown]
  - Obsessive-compulsive symptom [Unknown]

NARRATIVE: CASE EVENT DATE: 200901
